FAERS Safety Report 9889171 (Version 1)
Quarter: 2014Q1

REPORT INFORMATION
  Report Type: Spontaneous
  Country: US (occurrence: None)
  Receive Date: 20140207
  Receipt Date: 20140207
  Transmission Date: 20141002
  Serious: Yes (Hospitalization)
  Sender: FDA-Public Use
  Company Number: SP07472

PATIENT
  Age: 59 Year
  Sex: Male

DRUGS (1)
  1. MOVIPREP [Suspect]
     Dosage: (1 LIT), ORAL
     Route: 048

REACTIONS (1)
  - Aspiration [None]
